FAERS Safety Report 4949545-6 (Version None)
Quarter: 2006Q1

REPORT INFORMATION
  Report Type: 
  Country: None (occurrence: None)
  Receive Date: 20060316
  Receipt Date: 20060307
  Transmission Date: 20060701
  Serious: Yes (Other)
  Sender: FDA-Public Use
  Company Number: 2006032701

PATIENT
  Sex: Female

DRUGS (1)
  1. UNISOM [Suspect]
     Dosage: ^ENTIRE 32 COUNT BOTTLE^, ORAL
     Route: 048
     Dates: start: 20060307, end: 20060307

REACTIONS (2)
  - OVERDOSE [None]
  - SOMNOLENCE [None]
